FAERS Safety Report 16612644 (Version 1)
Quarter: 2019Q3

REPORT INFORMATION
  Report Type: Spontaneous
  Country: US (occurrence: US)
  Receive Date: 20190722
  Receipt Date: 20190722
  Transmission Date: 20191004
  Serious: No
  Sender: FDA-Public Use
  Company Number: None

PATIENT
  Age: 28 Year
  Sex: Female
  Weight: 61.3 kg

DRUGS (1)
  1. REMICADE [Suspect]
     Active Substance: INFLIXIMAB
     Indication: CROHN^S DISEASE
     Dosage: ?          OTHER FREQUENCY:ON WEEKS 0, 2, 6;?
     Dates: start: 20190626

REACTIONS (4)
  - Chest discomfort [None]
  - Flushing [None]
  - Throat tightness [None]
  - Infusion related reaction [None]

NARRATIVE: CASE EVENT DATE: 20190722
